FAERS Safety Report 12407176 (Version 1)
Quarter: 2016Q2

REPORT INFORMATION
  Report Type: Report from Study
  Country: MX (occurrence: MX)
  Receive Date: 20160526
  Receipt Date: 20160526
  Transmission Date: 20160815
  Serious: Yes (Other)
  Sender: FDA-Public Use
  Company Number: MX-BAYER-2016-097483

PATIENT
  Sex: Female
  Weight: 67 kg

DRUGS (1)
  1. NEXAVAR [Suspect]
     Active Substance: SORAFENIB
     Indication: RENAL CELL CARCINOMA
     Dosage: 400 MG, BID

REACTIONS (5)
  - Unevaluable event [Not Recovered/Not Resolved]
  - Skin exfoliation [Recovering/Resolving]
  - General physical health deterioration [None]
  - Abasia [None]
  - Skin reaction [Recovering/Resolving]
